FAERS Safety Report 5164738-3 (Version None)
Quarter: 2006Q4

REPORT INFORMATION
  Report Type: 
  Country: None (occurrence: None)
  Receive Date: 20061205
  Receipt Date: 20020701
  Transmission Date: 20070319
  Serious: Yes (Hospitalization)
  Sender: FDA-Public Use
  Company Number: FR-GLAXOSMITHKLINE-B0273260A

PATIENT
  Sex: Male
  Weight: 2.8 kg

DRUGS (11)
  1. EPIVIR [Suspect]
     Indication: HIV INFECTION
     Route: 048
  2. RETROVIR [Suspect]
     Indication: ANTIVIRAL PROPHYLAXIS
     Route: 042
     Dates: start: 20020202, end: 20020202
  3. VIRACEPT [Suspect]
     Indication: HIV INFECTION
     Route: 048
  4. ZERIT [Suspect]
     Indication: HIV INFECTION
     Route: 048
  5. BACTRIM [Suspect]
     Route: 048
  6. ZERIT [Suspect]
     Indication: ANTIVIRAL PROPHYLAXIS
     Route: 048
     Dates: start: 20020202, end: 20020226
  7. PULMICORT [Concomitant]
     Route: 055
  8. BRICANYL [Concomitant]
     Route: 065
  9. VENTOLIN [Concomitant]
     Route: 055
  10. BECOTIDE [Concomitant]
     Route: 055
  11. GYNOPEVARYL [Concomitant]
     Route: 067

REACTIONS (23)
  - ASPARTATE AMINOTRANSFERASE INCREASED [None]
  - BLOOD CREATINE PHOSPHOKINASE INCREASED [None]
  - BLOOD KETONE BODY PRESENT [None]
  - BLOOD LACTIC ACID INCREASED [None]
  - BLOOD PYRUVIC ACID INCREASED [None]
  - CAESAREAN SECTION [None]
  - CARDIAC MURMUR [None]
  - CRYING [None]
  - DRUG EXPOSURE DURING PREGNANCY [None]
  - ECHOGRAPHY ABNORMAL [None]
  - FOETAL DISTRESS SYNDROME [None]
  - HYPERTONIA [None]
  - ILL-DEFINED DISORDER [None]
  - LACTATE PYRUVATE RATIO INCREASED [None]
  - LIPASE INCREASED [None]
  - METABOLIC DISORDER [None]
  - NEONATAL DISORDER [None]
  - PREMATURE BABY [None]
  - THROMBOCYTHAEMIA [None]
  - TREMOR [None]
  - ULTRASOUND SCAN ABNORMAL [None]
  - VASCULITIS CEREBRAL [None]
  - VISUAL DISTURBANCE [None]
